FAERS Safety Report 5755729-X (Version None)
Quarter: 2008Q2

REPORT INFORMATION
  Report Type: 
  Country: None (occurrence: None)
  Receive Date: 20080602
  Receipt Date: 20080526
  Transmission Date: 20081010
  Serious: Yes (Life-Threatening, Hospitalization)
  Sender: FDA-Public Use
  Company Number: DE-BRISTOL-MYERS SQUIBB COMPANY-14210819

PATIENT
  Age: 48 Year
  Sex: Female

DRUGS (2)
  1. MITOMYCIN [Suspect]
     Indication: BREAST CANCER METASTATIC
     Dosage: MITOMYCIN INJECTION
     Route: 042
     Dates: start: 20071101, end: 20080301
  2. FASLODEX [Concomitant]
     Route: 042
     Dates: start: 20070901

REACTIONS (2)
  - HAEMOLYTIC URAEMIC SYNDROME [None]
  - PLEURAL EFFUSION [None]
